FAERS Safety Report 6757869-5 (Version None)
Quarter: 2010Q2

REPORT INFORMATION
  Report Type: 
  Country: None (occurrence: None)
  Receive Date: 20100604
  Receipt Date: 20100604
  Transmission Date: 20101027
  Serious: Yes (Life-Threatening)
  Sender: FDA-Public Use
  Company Number: None

PATIENT
  Age: 63 Year
  Sex: Female
  Weight: 68.9467 kg

DRUGS (2)
  1. FENTANYL [Suspect]
     Indication: FIBROMYALGIA
     Dosage: 100 MCG Q 72 HOUR TRANSDERMAL
     Route: 062
     Dates: start: 20100517, end: 20100517
  2. FENTANYL [Suspect]
     Indication: FIBROMYALGIA
     Dosage: 100 MCG Q 72 HOUR TRANSDERMAL
     Route: 062
     Dates: start: 20100518, end: 20100518

REACTIONS (8)
  - ABDOMINAL PAIN [None]
  - CONTUSION [None]
  - DIARRHOEA [None]
  - DYSARTHRIA [None]
  - FALL [None]
  - HALLUCINATION [None]
  - INCORRECT DOSE ADMINISTERED [None]
  - PRODUCT QUALITY ISSUE [None]
